FAERS Safety Report 21886775 (Version 1)
Quarter: 2023Q1

REPORT INFORMATION
  Report Type: Spontaneous
  Country: US (occurrence: US)
  Receive Date: 20230119
  Receipt Date: 20230119
  Transmission Date: 20230417
  Serious: Yes (Other)
  Sender: FDA-Public Use
  Company Number: US-HALEON-USCH2023002500

PATIENT
  Age: 51 Year
  Sex: Female

DRUGS (2)
  1. CHAPSTICK MEDICATED [Suspect]
     Active Substance: CAMPHOR (SYNTHETIC)\MENTHOL\PETROLATUM\PHENOL
     Indication: Product used for unknown indication
     Dosage: UNK
  2. CHAPSTICK MEDICATED [Suspect]
     Active Substance: CAMPHOR (SYNTHETIC)\MENTHOL\PETROLATUM\PHENOL
     Dosage: UNK
     Dates: start: 202212

REACTIONS (2)
  - Drug dependence [Unknown]
  - Drug ineffective [Unknown]
